FAERS Safety Report 4289701-6 (Version None)
Quarter: 2004Q1

REPORT INFORMATION
  Report Type: 
  Country: None (occurrence: None)
  Receive Date: 20040123
  Receipt Date: 20031023
  Transmission Date: 20041129
  Serious: Yes (Hospitalization)
  Sender: FDA-Public Use
  Company Number: LOV-US-03-00155

PATIENT
  Age: 71 Year
  Sex: Female
  Weight: 65.318 kg

DRUGS (9)
  1. ALTOCOR [Suspect]
     Indication: BLOOD CHOLESTEROL INCREASED
     Dosage: 60 MG QD PO
     Route: 048
     Dates: start: 20030501, end: 20030801
  2. K-DUR 10 [Concomitant]
  3. DIGOXIN [Concomitant]
  4. GLIPIZIDE [Concomitant]
  5. LASIX [Concomitant]
  6. VIOXX (REFECOXIB) [Concomitant]
  7. ASPIRIN [Concomitant]
  8. ALDACTONE 25 MG [Concomitant]
  9. FLOVENT [Concomitant]

REACTIONS (1)
  - RHABDOMYOLYSIS [None]
